FAERS Safety Report 7408526-3 (Version None)
Quarter: 2011Q2

REPORT INFORMATION
  Report Type: 
  Country: None (occurrence: None)
  Receive Date: 20110412
  Receipt Date: 20110406
  Transmission Date: 20111010
  Serious: Yes (Other)
  Sender: FDA-Public Use
  Company Number: IN-PFIZER INC-2011077568

PATIENT
  Age: 60 Year
  Sex: Male
  Weight: 75 kg

DRUGS (1)
  1. SUTENT [Suspect]
     Indication: METASTATIC RENAL CELL CARCINOMA
     Dosage: 50 MG, 1X/DAY
     Route: 048

REACTIONS (2)
  - GASTRIC POLYPS [None]
  - GASTROINTESTINAL HAEMORRHAGE [None]
